FAERS Safety Report 9928299 (Version 2)
Quarter: 2014Q1

REPORT INFORMATION
  Report Type: Report from Study
  Country: US (occurrence: US)
  Receive Date: 20140227
  Receipt Date: 20140303
  Transmission Date: 20141002
  Serious: Yes (Hospitalization)
  Sender: FDA-Public Use
  Company Number: US-ROCHE-1356697

PATIENT
  Age: 80 Year
  Sex: Female

DRUGS (13)
  1. LUCENTIS [Suspect]
     Indication: MACULAR DEGENERATION
     Dosage: INJECTION LEFT EYE
     Route: 050
     Dates: start: 200602
  2. CRESTOR [Concomitant]
     Route: 065
  3. GLUCOSAMINE/CHONDROITIN [Concomitant]
  4. GLYBURIDE [Concomitant]
     Route: 065
  5. HYDROCHLOROTHIAZIDE [Concomitant]
     Route: 065
  6. LISINOPRIL [Concomitant]
     Route: 065
  7. PIROXICAM [Concomitant]
     Route: 065
  8. PLAVIX [Concomitant]
     Route: 065
  9. RESTASIS [Concomitant]
     Route: 065
  10. BABY ASPIRIN [Concomitant]
     Route: 065
  11. RISPERDAL [Concomitant]
     Route: 065
  12. CARVEDILOL [Concomitant]
     Route: 065
  13. ACTOS [Concomitant]
     Route: 065

REACTIONS (6)
  - Dyspnoea [Recovered/Resolved]
  - Blood pressure increased [Unknown]
  - Heart rate increased [Recovered/Resolved]
  - Myocardial infarction [Unknown]
  - Cardiac enzymes increased [Recovered/Resolved]
  - Visual acuity reduced [Not Recovered/Not Resolved]
